FAERS Safety Report 21081508 (Version 1)
Quarter: 2022Q3

REPORT INFORMATION
  Report Type: Spontaneous
  Country: US (occurrence: None)
  Receive Date: 20220713
  Receipt Date: 20220713
  Transmission Date: 20221027
  Serious: Yes (Other)
  Sender: FDA-Public Use
  Company Number: None

PATIENT
  Age: 36 Year
  Sex: Female
  Weight: 85.05 kg

DRUGS (4)
  1. SUBOXONE [Suspect]
     Active Substance: BUPRENORPHINE HYDROCHLORIDE\NALOXONE HYDROCHLORIDE
     Indication: Drug dependence
     Dosage: OTHER QUANTITY : 2 2 STRIPS A DAY;?FREQUENCY : TWICE A DAY;?
     Route: 060
  2. VITAMIN D [Concomitant]
     Active Substance: VITAMIN D NOS
  3. SUBOXONE [Concomitant]
     Active Substance: BUPRENORPHINE HYDROCHLORIDE\NALOXONE HYDROCHLORIDE
  4. MELATONIN [Concomitant]
     Active Substance: MELATONIN

REACTIONS (2)
  - Emotional distress [None]
  - Tooth loss [None]

NARRATIVE: CASE EVENT DATE: 20200816
